FAERS Safety Report 19277183 (Version 1)
Quarter: 2021Q2

REPORT INFORMATION
  Report Type: Spontaneous
  Country: US (occurrence: US)
  Receive Date: 20210519
  Receipt Date: 20210519
  Transmission Date: 20210717
  Serious: No
  Sender: FDA-Public Use
  Company Number: US-ASTRAZENECA-2021A418635

PATIENT
  Age: 63 Year
  Sex: Male
  Weight: 102.1 kg

DRUGS (4)
  1. WHITE GENERIC VIAGRA [Suspect]
     Active Substance: SILDENAFIL CITRATE
     Indication: ERECTILE DYSFUNCTION
     Dosage: 100MG ONE TABLET BY MOUTH, AS NEEDED
     Route: 048
     Dates: start: 2021
  2. BLUE GREEN GENERIC VIAGRA [Suspect]
     Active Substance: SILDENAFIL CITRATE
     Indication: ERECTILE DYSFUNCTION
     Dosage: 100MG ONCE A DAY BY MOUTH, AS NEEDED
     Route: 048
  3. SEROQUEL [Suspect]
     Active Substance: QUETIAPINE FUMARATE
     Route: 048
  4. VIAGRA [Suspect]
     Active Substance: SILDENAFIL CITRATE
     Indication: ERECTILE DYSFUNCTION
     Dosage: 100MG ONCE A DAY BY MOUTH, AS NEEDED
     Route: 048

REACTIONS (3)
  - Diabetes mellitus [Unknown]
  - Erectile dysfunction [Unknown]
  - Therapeutic response changed [Unknown]

NARRATIVE: CASE EVENT DATE: 2021
